FAERS Safety Report 14702860 (Version 2)
Quarter: 2018Q2

REPORT INFORMATION
  Report Type: Report from Study
  Country: None (occurrence: US)
  Receive Date: 20180402
  Receipt Date: 20180423
  Transmission Date: 20180711
  Serious: Yes (Other)
  Sender: FDA-Public Use
  Company Number: US-ABBVIE-18K-163-2275214-00

PATIENT
  Age: 61 Year
  Sex: Female

DRUGS (1)
  1. HUMIRA [Suspect]
     Active Substance: ADALIMUMAB
     Indication: COLITIS ULCERATIVE
     Route: 058
     Dates: start: 2016

REACTIONS (11)
  - Stomatitis [Recovered/Resolved with Sequelae]
  - Vaginal infection [Recovered/Resolved]
  - Drug resistance [Not Recovered/Not Resolved]
  - Colitis ulcerative [Recovered/Resolved]
  - Fatigue [Unknown]
  - Constipation [Unknown]
  - Limb injury [Unknown]
  - White blood cell count decreased [Unknown]
  - Osteoarthritis [Recovering/Resolving]
  - Red blood cell count decreased [Unknown]
  - Ear infection [Recovered/Resolved]

NARRATIVE: CASE EVENT DATE: 201701
